FAERS Safety Report 4958950-3 (Version None)
Quarter: 2006Q1

REPORT INFORMATION
  Report Type: 
  Country: None (occurrence: None)
  Receive Date: 20060324
  Receipt Date: 20060315
  Transmission Date: 20060701
  Serious: Yes (Hospitalization)
  Sender: FDA-Public Use
  Company Number: 2006036235

PATIENT
  Age: 63 Year
  Sex: Female
  Weight: 86.1834 kg

DRUGS (12)
  1. NICOTROL [Suspect]
     Indication: SMOKING CESSATION THERAPY
     Dosage: USED 2 CARTRIDGES IN TOTAL, INHALATION
     Route: 055
     Dates: start: 20060224, end: 20060305
  2. NICOTINE [Suspect]
     Indication: SMOKING CESSATION THERAPY
     Dosage: TRANSDERMAL
     Route: 062
  3. DIAZEPAM [Concomitant]
  4. PREDNISONE TAB [Concomitant]
  5. ATORVASTATIN CALCIUM [Concomitant]
  6. OMEPRAZOLE [Concomitant]
  7. ACYCLOVIR [Concomitant]
  8. SERETIDE MITE (FLUTICASONE PROPIONATE, SALMETEROL XINAFOATE) [Concomitant]
  9. OXYCODONE HYDROCHLORIDE AND ACETAMINOPHEN [Concomitant]
  10. DULOXETINE HYDROCHLORIDE (DULOXETINE HYDROCHLORIDE) [Concomitant]
  11. VALSARTAN [Concomitant]
  12. OXYCODONE HCL [Concomitant]

REACTIONS (3)
  - CARDIAC DISORDER [None]
  - CHEST PAIN [None]
  - MYOCARDIAL INFARCTION [None]
